FAERS Safety Report 7459448-3 (Version None)
Quarter: 2011Q2

REPORT INFORMATION
  Report Type: 
  Country: None (occurrence: None)
  Receive Date: 20110504
  Receipt Date: 20110504
  Transmission Date: 20111010
  Serious: Yes (Other)
  Sender: FDA-Public Use
  Company Number: None

PATIENT
  Age: 20 Year
  Sex: Female
  Weight: 38.5557 kg

DRUGS (1)
  1. SINGULAIR [Suspect]

REACTIONS (4)
  - DRUG DOSE OMISSION [None]
  - MIGRAINE [None]
  - DYSPNOEA [None]
  - CHEST DISCOMFORT [None]
